FAERS Safety Report 20546753 (Version 2)
Quarter: 2022Q1

REPORT INFORMATION
  Report Type: Report from Study
  Country: KR (occurrence: KR)
  Receive Date: 20220303
  Receipt Date: 20220316
  Transmission Date: 20220423
  Serious: Yes (Hospitalization)
  Sender: FDA-Public Use
  Company Number: KR-GLAXOSMITHKLINE-KR2022GSK038823

PATIENT
  Age: 25 Year
  Sex: Female
  Weight: 53.3 kg

DRUGS (19)
  1. BELIMUMAB [Suspect]
     Active Substance: BELIMUMAB
     Indication: Systemic lupus erythematosus
     Dosage: 520
     Route: 042
     Dates: start: 20210916
  2. BELIMUMAB [Suspect]
     Active Substance: BELIMUMAB
     Dosage: 508 UNK
     Route: 042
     Dates: start: 20210930
  3. BELIMUMAB [Suspect]
     Active Substance: BELIMUMAB
     Dosage: 508 UNK
     Route: 042
     Dates: start: 20211015
  4. BELIMUMAB [Suspect]
     Active Substance: BELIMUMAB
     Dosage: 508 UNK
     Route: 042
     Dates: start: 20211110
  5. BELIMUMAB [Suspect]
     Active Substance: BELIMUMAB
     Dosage: 508 UNK
     Route: 042
     Dates: start: 20211208
  6. BELIMUMAB [Suspect]
     Active Substance: BELIMUMAB
     Dosage: 508 UNK
     Route: 042
     Dates: start: 20220105
  7. BELIMUMAB [Suspect]
     Active Substance: BELIMUMAB
     Dosage: 508 UNK
     Route: 042
     Dates: start: 20220203
  8. BELIMUMAB [Suspect]
     Active Substance: BELIMUMAB
     Dosage: 508 UNK
     Route: 042
     Dates: start: 20220302
  9. CITRACAL F [Concomitant]
     Indication: Osteopenia
     Dosage: 1 TABLET
     Route: 048
     Dates: start: 20110120
  10. LIPITOR [Concomitant]
     Active Substance: ATORVASTATIN CALCIUM
     Indication: Dyslipidaemia
     Dosage: 10 MG
     Route: 048
     Dates: start: 20210701
  11. FEROBA-YOU SR [Concomitant]
     Indication: Anaemia
     Dosage: 1 TABLET, BID
     Route: 048
     Dates: start: 20210712
  12. RAMIPRIL [Concomitant]
     Active Substance: RAMIPRIL
     Indication: Lupus nephritis
     Dosage: 2.5 UNK, QD
     Route: 048
     Dates: start: 20170807
  13. MYCOPHENOLATE MOFETIL [Concomitant]
     Active Substance: MYCOPHENOLATE MOFETIL
     Dosage: 1000 MG, BID
     Route: 048
     Dates: start: 20210701
  14. DEFLAZACORT [Concomitant]
     Active Substance: DEFLAZACORT
     Dosage: 9 MG, QD
     Route: 048
     Dates: start: 20220105
  15. DEFLAZACORT [Concomitant]
     Active Substance: DEFLAZACORT
     Dosage: 12 MG, QD
     Route: 048
     Dates: start: 20211208, end: 20220104
  16. DEFLAZACORT [Concomitant]
     Active Substance: DEFLAZACORT
     Dosage: 18 MG, QD
     Route: 048
     Dates: start: 20211124, end: 20211207
  17. DEFLAZACORT [Concomitant]
     Active Substance: DEFLAZACORT
     Dosage: 24 MG, QD
     Route: 048
     Dates: start: 20211110, end: 20211123
  18. DEFLAZACORT [Concomitant]
     Active Substance: DEFLAZACORT
     Dosage: 15 MG, BID
     Route: 048
     Dates: start: 20210930, end: 20211031
  19. DEFLAZACORT [Concomitant]
     Active Substance: DEFLAZACORT
     Dosage: 18 MG, BID
     Route: 048
     Dates: start: 20210708, end: 20210929

REACTIONS (1)
  - COVID-19 [Recovered/Resolved]

NARRATIVE: CASE EVENT DATE: 20220207
